FAERS Safety Report 19846438 (Version 1)
Quarter: 2021Q3

REPORT INFORMATION
  Report Type: Spontaneous
  Country: US (occurrence: US)
  Receive Date: 20210917
  Receipt Date: 20210917
  Transmission Date: 20211014
  Serious: Yes (Other)
  Sender: FDA-Public Use
  Company Number: US-CIPLA LTD.-2021US06123

PATIENT

DRUGS (2)
  1. GEMCITABINE. [Suspect]
     Active Substance: GEMCITABINE
     Indication: PLEOMORPHIC MALIGNANT FIBROUS HISTIOCYTOMA
     Dosage: UNK
     Route: 065
  2. DOCETAXEL. [Suspect]
     Active Substance: DOCETAXEL
     Indication: PLEOMORPHIC MALIGNANT FIBROUS HISTIOCYTOMA
     Dosage: UNK
     Route: 065

REACTIONS (2)
  - Toxicity to various agents [Unknown]
  - Drug intolerance [Unknown]
